FAERS Safety Report 25337670 (Version 2)
Quarter: 2025Q2

REPORT INFORMATION
  Report Type: Spontaneous
  Country: BR (occurrence: BR)
  Receive Date: 20250520
  Receipt Date: 20250625
  Transmission Date: 20250717
  Serious: Yes (Other)
  Sender: GLAXOSMITHKLINE
  Company Number: BR-GSK-BR2025AMR060214

PATIENT
  Sex: Male

DRUGS (1)
  1. SERETIDE [Suspect]
     Active Substance: FLUTICASONE PROPIONATE\SALMETEROL XINAFOATE
     Indication: Bronchitis
     Dosage: UNK UNK, BID, 50/250MCG

REACTIONS (4)
  - Pneumonia [Recovered/Resolved]
  - Device use issue [Unknown]
  - Product use in unapproved indication [Unknown]
  - Product complaint [Unknown]
